FAERS Safety Report 5351192-1 (Version None)
Quarter: 2007Q2

REPORT INFORMATION
  Report Type: 
  Country: None (occurrence: None)
  Receive Date: 20070608
  Receipt Date: 20070606
  Transmission Date: 20071010
  Serious: Yes (Hospitalization)
  Sender: FDA-Public Use
  Company Number: FRWYE805406JUN07

PATIENT
  Age: 48 Year
  Sex: Male

DRUGS (5)
  1. TAZOCILLINE [Suspect]
     Dosage: 12 G TOTAL DAILY
     Route: 042
     Dates: start: 20070318, end: 20070322
  2. ALDACTONE [Concomitant]
     Indication: HEPATIC CIRRHOSIS
     Dosage: UNKNOWN
     Route: 048
     Dates: start: 20070301
  3. TRUVADA [Concomitant]
     Indication: HIV TEST POSITIVE
     Dosage: UNKNOWN
     Route: 048
     Dates: start: 20061001
  4. CIFLOX [Concomitant]
     Dosage: UNKNOWN
     Dates: start: 20070318
  5. KALETRA [Concomitant]
     Indication: HIV TEST POSITIVE
     Dosage: UNKNOWN
     Route: 048
     Dates: start: 20061001

REACTIONS (18)
  - ASPARTATE AMINOTRANSFERASE INCREASED [None]
  - BLOOD BILIRUBIN INCREASED [None]
  - BLOOD CREATININE INCREASED [None]
  - COAGULATION FACTOR V LEVEL DECREASED [None]
  - CONDITION AGGRAVATED [None]
  - DERMATITIS BULLOUS [None]
  - DRUG RASH WITH EOSINOPHILIA AND SYSTEMIC SYMPTOMS [None]
  - ENCEPHALOPATHY [None]
  - EOSINOPHILIA [None]
  - ERYTHEMA [None]
  - HEPATIC FAILURE [None]
  - HYPERSENSITIVITY [None]
  - PROTHROMBIN TIME RATIO DECREASED [None]
  - PURPURA [None]
  - PYREXIA [None]
  - STEVENS-JOHNSON SYNDROME [None]
  - STOMATITIS NECROTISING [None]
  - TONGUE HAEMORRHAGE [None]
